FAERS Safety Report 8158545-7 (Version None)
Quarter: 2012Q1

REPORT INFORMATION
  Report Type: 
  Country: None (occurrence: None)
  Receive Date: 20120223
  Receipt Date: 20120213
  Transmission Date: 20120608
  Serious: Yes (Hospitalization, Other)
  Sender: FDA-Public Use
  Company Number: CA-JNJFOC-20120204171

PATIENT
  Sex: Female
  Weight: 99.34 kg

DRUGS (13)
  1. FUROSEMIDE [Concomitant]
     Route: 065
  2. PREDNISONE TAB [Concomitant]
     Route: 065
  3. ALBUTEROL SULFATE AUTOHALER [Concomitant]
     Route: 055
  4. INVEGA SUSTENNA [Suspect]
     Indication: SCHIZOPHRENIA
     Dosage: ON JAN-17
     Route: 065
  5. ZANTAC [Concomitant]
     Route: 065
  6. AVELOX [Concomitant]
     Route: 065
  7. ATROVENT [Concomitant]
     Route: 055
  8. CLOBETASOL PROPIONATE [Concomitant]
     Route: 065
  9. INVEGA SUSTENNA [Suspect]
     Dosage: ON JAN-24
     Route: 065
  10. ACETAMINOPHEN [Concomitant]
     Route: 065
  11. DOCUSATE [Concomitant]
     Route: 065
  12. LEVOTHYROXINE SODIUM [Concomitant]
     Route: 065
  13. BENZTROPINE MESYLATE [Concomitant]
     Route: 065

REACTIONS (5)
  - SWELLING FACE [None]
  - OEDEMA [None]
  - DYSPNOEA [None]
  - BLOOD PRESSURE DECREASED [None]
  - SLEEP APNOEA SYNDROME [None]
